FAERS Safety Report 9213239 (Version 4)
Quarter: 2013Q4

REPORT INFORMATION
  Report Type: Spontaneous
  Country: JP (occurrence: JP)
  Receive Date: 20130405
  Receipt Date: 20131205
  Transmission Date: 20140711
  Serious: Yes (Death, Other)
  Sender: FDA-Public Use
  Company Number: JP-JNJFOC-20130318340

PATIENT
  Age: 61 Year
  Sex: Male

DRUGS (18)
  1. REMICADE [Suspect]
     Indication: RHEUMATOID ARTHRITIS
     Route: 042
     Dates: start: 20111116
  2. PREDONINE [Suspect]
     Indication: RHEUMATIC DISORDER
     Route: 048
     Dates: end: 20111128
  3. PREDONINE [Suspect]
     Indication: RHEUMATOID ARTHRITIS
     Route: 048
     Dates: end: 20111128
  4. RHEUMATREX [Suspect]
     Indication: RHEUMATOID ARTHRITIS
     Route: 048
     Dates: end: 20111128
  5. TAKEPRON [Concomitant]
     Indication: GASTRITIS
     Route: 048
     Dates: end: 20111128
  6. TAKEPRON [Concomitant]
     Indication: GASTRITIS
     Route: 048
  7. VESICARE [Concomitant]
     Indication: DYSURIA
     Route: 048
     Dates: end: 20111128
  8. CEREKINON [Concomitant]
     Indication: GASTROINTESTINAL DISORDER
     Route: 048
  9. CEREKINON [Concomitant]
     Indication: GASTROINTESTINAL DISORDER
     Route: 048
     Dates: end: 20111128
  10. VOLTAREN [Concomitant]
     Indication: RHEUMATIC DISORDER
     Route: 054
     Dates: end: 20111128
  11. AZULFIDINE-EN [Concomitant]
     Indication: RHEUMATOID ARTHRITIS
     Route: 048
     Dates: end: 20111128
  12. AZULFIDINE-EN [Concomitant]
     Indication: RHEUMATOID ARTHRITIS
     Route: 048
  13. CYTOTEC [Concomitant]
     Indication: GASTRITIS
     Route: 048
  14. CYTOTEC [Concomitant]
     Indication: GASTRITIS
     Route: 048
     Dates: end: 20111128
  15. URIEF [Concomitant]
     Indication: DYSURIA
     Route: 048
  16. URIEF [Concomitant]
     Indication: DYSURIA
     Route: 048
     Dates: end: 20111128
  17. AMOBAN [Concomitant]
     Indication: INSOMNIA
     Route: 048
     Dates: end: 20111128
  18. AMOBAN [Concomitant]
     Indication: INSOMNIA
     Route: 048

REACTIONS (3)
  - Toxic shock syndrome [Fatal]
  - Sepsis [Fatal]
  - Disseminated intravascular coagulation [Unknown]
